FAERS Safety Report 9624623 (Version 1)
Quarter: 2013Q4

REPORT INFORMATION
  Report Type: Spontaneous
  Country: US (occurrence: US)
  Receive Date: 20131015
  Receipt Date: 20131015
  Transmission Date: 20140711
  Serious: Yes (Hospitalization, Other)
  Sender: FDA-Public Use
  Company Number: US-PFIZER INC-2013292120

PATIENT
  Age: 21 Year
  Sex: Male

DRUGS (5)
  1. PHENYTOIN [Suspect]
     Indication: CONVULSION
     Dosage: 500 MG, DAILY
  2. PHENYTOIN [Suspect]
     Dosage: 350 MG, DAILY
  3. ETHOTOIN [Suspect]
     Indication: CONVULSION
  4. VALPROIC ACID [Suspect]
     Indication: CONVULSION
     Dosage: 1500 MG, DAILY
  5. CARBAMAZEPINE [Concomitant]
     Indication: CONVULSION
     Dosage: 800 MG, DAILY

REACTIONS (12)
  - Toxicity to various agents [Unknown]
  - Anticonvulsant drug level above therapeutic [Unknown]
  - Choreoathetosis [Recovered/Resolved]
  - Dystonia [Recovered/Resolved]
  - Ballismus [Recovered/Resolved]
  - Somnolence [Recovered/Resolved]
  - Nystagmus [Recovered/Resolved]
  - Somnolence [Recovered/Resolved]
  - Ataxia [Unknown]
  - Lethargy [Unknown]
  - Tremor [Unknown]
  - Gingival hypertrophy [Unknown]
